FAERS Safety Report 17679340 (Version 1)
Quarter: 2020Q2

REPORT INFORMATION
  Report Type: Spontaneous
  Country: US (occurrence: US)
  Receive Date: 20200416
  Receipt Date: 20200416
  Transmission Date: 20200714
  Serious: No
  Sender: FDA-Public Use
  Company Number: None

PATIENT
  Age: 50 Year
  Sex: Male

DRUGS (2)
  1. TRAVOPROST. [Suspect]
     Active Substance: TRAVOPROST
  2. TRAVAPROST [Concomitant]

REACTIONS (2)
  - Product substitution issue [None]
  - Therapy non-responder [None]

NARRATIVE: CASE EVENT DATE: 20090430
